FAERS Safety Report 4958037-X (Version None)
Quarter: 2006Q1

REPORT INFORMATION
  Report Type: 
  Country: None (occurrence: None)
  Receive Date: 20060324
  Receipt Date: 20060316
  Transmission Date: 20060701
  Serious: Yes (Hospitalization)
  Sender: FDA-Public Use
  Company Number: MEDI-0004242

PATIENT
  Age: 11 Month
  Sex: Male

DRUGS (7)
  1. SYNAGIS [Suspect]
     Indication: ANTIVIRAL PROPHYLAXIS
     Dosage: 1 N 30 D, INTRAMUSCULAR
     Route: 030
     Dates: start: 20051006, end: 20060206
  2. SYNAGIS [Suspect]
     Indication: ANTIVIRAL PROPHYLAXIS
     Dosage: 1 N 30 D, INTRAMUSCULAR
     Route: 030
     Dates: start: 20051006
  3. SYNAGIS [Suspect]
     Indication: ANTIVIRAL PROPHYLAXIS
     Dosage: 1 N 30 D, INTRAMUSCULAR
     Route: 030
     Dates: start: 20051024
  4. SYNAGIS [Suspect]
     Indication: ANTIVIRAL PROPHYLAXIS
     Dosage: 1 N 30 D, INTRAMUSCULAR
     Route: 030
     Dates: start: 20051122
  5. SYNAGIS [Suspect]
     Indication: ANTIVIRAL PROPHYLAXIS
     Dosage: 1 N 30 D, INTRAMUSCULAR
     Route: 030
     Dates: start: 20060109
  6. SALBUTAMOL (SALBUTAMOL) [Concomitant]
  7. ATROVENT [Concomitant]

REACTIONS (3)
  - BRONCHITIS [None]
  - DRUG INEFFECTIVE [None]
  - RESPIRATORY SYNCYTIAL VIRUS INFECTION [None]
